FAERS Safety Report 21266319 (Version 1)
Quarter: 2022Q3

REPORT INFORMATION
  Report Type: Report from Study
  Country: JP (occurrence: JP)
  Receive Date: 20220829
  Receipt Date: 20220829
  Transmission Date: 20221027
  Serious: Yes (Other)
  Sender: FDA-Public Use
  Company Number: JP-MSD-A201507117

PATIENT
  Age: 46 Year
  Sex: Male

DRUGS (8)
  1. ISENTRESS [Suspect]
     Active Substance: RALTEGRAVIR POTASSIUM
     Indication: HIV infection
     Dosage: 800 MILLIGRAM/DAILY
     Route: 048
     Dates: start: 20090119, end: 20180703
  2. ISENTRESS [Suspect]
     Active Substance: RALTEGRAVIR POTASSIUM
     Indication: HIV infection
     Dosage: 1200 MILLIGRAM/DAY
     Route: 048
     Dates: start: 20180704, end: 20201025
  3. KALETRA [Suspect]
     Active Substance: LOPINAVIR\RITONAVIR
     Indication: HIV infection
     Dosage: 8 DF, UNK
     Route: 048
     Dates: start: 20020314, end: 20061109
  4. KALETRA [Suspect]
     Active Substance: LOPINAVIR\RITONAVIR
     Dosage: 2 DOSAGE FORM, BID
     Route: 048
     Dates: start: 20061110, end: 20210601
  5. EDURANT [Suspect]
     Active Substance: RILPIVIRINE HYDROCHLORIDE
     Indication: HIV infection
     Dosage: 25 MILLIGRAM
     Route: 048
     Dates: start: 20130410, end: 20201025
  6. INTRON A [Concomitant]
     Active Substance: INTERFERON ALFA-2B
     Indication: Chronic hepatitis C
     Dosage: 300 MICROGRAM, TIW
     Route: 051
     Dates: end: 20160112
  7. XYZAL [Concomitant]
     Active Substance: LEVOCETIRIZINE DIHYDROCHLORIDE
     Indication: Dermatitis atopic
     Dosage: 5 MG, QD
     Route: 048
  8. JULUCA [Concomitant]
     Active Substance: DOLUTEGRAVIR SODIUM\RILPIVIRINE HYDROCHLORIDE
     Indication: HIV infection
     Dosage: 1 DOSAGE FORM
     Route: 048
     Dates: start: 20201026

REACTIONS (2)
  - Diabetes mellitus [Not Recovered/Not Resolved]
  - Blood creatinine increased [Recovering/Resolving]

NARRATIVE: CASE EVENT DATE: 20141015
